FAERS Safety Report 11705642 (Version 7)
Quarter: 2019Q1

REPORT INFORMATION
  Report Type: Spontaneous
  Country: US (occurrence: US)
  Receive Date: 20151106
  Receipt Date: 20190313
  Transmission Date: 20190417
  Serious: Yes (Hospitalization, Disabling, Other)
  Sender: FDA-Public Use
  Company Number: US-PFIZER INC-2015375752

PATIENT
  Age: 28 Year
  Sex: Male

DRUGS (1)
  1. CHANTIX [Suspect]
     Active Substance: VARENICLINE TARTRATE
     Indication: SMOKING CESSATION THERAPY
     Dosage: UNK
     Dates: start: 20130915, end: 201309

REACTIONS (12)
  - Intentional self-injury [Unknown]
  - Blindness [Not Recovered/Not Resolved]
  - Mania [Unknown]
  - Pain [Unknown]
  - Hip fracture [Unknown]
  - Psychotic disorder [Unknown]
  - Fall [Unknown]
  - Acute psychosis [Unknown]
  - Delirium [Unknown]
  - Screaming [Unknown]
  - Aggression [Unknown]
  - Delusion [Unknown]

NARRATIVE: CASE EVENT DATE: 201312
